FAERS Safety Report 18845267 (Version 1)
Quarter: 2021Q1

REPORT INFORMATION
  Report Type: Spontaneous
  Country: US (occurrence: US)
  Receive Date: 20210204
  Receipt Date: 20210204
  Transmission Date: 20210419
  Serious: Yes (Life-Threatening, Other)
  Sender: FDA-Public Use
  Company Number: US-CELLTRION INC.-2021US001336

PATIENT

DRUGS (7)
  1. CARFILZOMIB [Suspect]
     Active Substance: CARFILZOMIB
     Dosage: 36 MG/M2 MODIFIED TO ONCE WEEKLY ON DAYS 9 AND 16
     Route: 042
  2. CARFILZOMIB [Suspect]
     Active Substance: CARFILZOMIB
     Dosage: 70 MG/M2 MODIFIED TO ONCE WEEKLY ON DAYS 9 AND 16
     Route: 042
  3. CARFILZOMIB [Suspect]
     Active Substance: CARFILZOMIB
     Indication: NON-HODGKIN^S LYMPHOMA REFRACTORY
     Dosage: 15 MG/M2 ON DAYS 1, 2, 8, 9, 15, AND 16
     Route: 042
  4. RITUXIMAB (UNKNOWN) [Suspect]
     Active Substance: RITUXIMAB
     Indication: NON-HODGKIN^S LYMPHOMA REFRACTORY
     Dosage: 375 MG/M2 ON DAY 9 OF CYCLE 1, AND DAY 1 OF SUBSEQUENT CYCLES
  5. CARFILZOMIB [Suspect]
     Active Substance: CARFILZOMIB
     Dosage: 56 MG/M2 MODIFIED TO ONCE WEEKLY ON DAYS 9 AND 16
     Route: 042
  6. CARFILZOMIB [Suspect]
     Active Substance: CARFILZOMIB
     Dosage: 20 MG/M2 STARTING DOSE GIVEN ON DAY 2
     Route: 042
  7. BENDAMUSTINE [Suspect]
     Active Substance: BENDAMUSTINE
     Indication: NON-HODGKIN^S LYMPHOMA REFRACTORY
     Dosage: 90 MG/M2 ON DAYS 1 AND 2
     Route: 042

REACTIONS (25)
  - Vomiting [Unknown]
  - Pyrexia [Unknown]
  - Fatigue [Unknown]
  - Diarrhoea [Unknown]
  - Headache [Unknown]
  - Febrile neutropenia [Unknown]
  - Musculoskeletal pain [Unknown]
  - Sinusitis [Unknown]
  - Insomnia [Unknown]
  - Cough [Unknown]
  - Neutropenia [Unknown]
  - Hypoxia [Unknown]
  - Leukopenia [Unknown]
  - Viral upper respiratory tract infection [Unknown]
  - Constipation [Unknown]
  - Abdominal pain [Unknown]
  - Hypertension [Unknown]
  - Thrombocytopenia [Unknown]
  - Anaemia [Unknown]
  - Nausea [Unknown]
  - Acute kidney injury [Unknown]
  - Neuropathy peripheral [Unknown]
  - Pneumonia [Unknown]
  - Hyponatraemia [Unknown]
  - Pleural effusion [Unknown]
